FAERS Safety Report 11333746 (Version 1)
Quarter: 2015Q3

REPORT INFORMATION
  Report Type: Spontaneous
  Country: US (occurrence: US)
  Receive Date: 20150803
  Receipt Date: 20150803
  Transmission Date: 20151125
  Serious: Yes (Other)
  Sender: FDA-Public Use
  Company Number: US-ELI_LILLY_AND_COMPANY-US200609003709

PATIENT
  Sex: Female
  Weight: 64.4 kg

DRUGS (2)
  1. ZYPREXA [Suspect]
     Active Substance: OLANZAPINE
     Dosage: 5 MG, UNK
     Dates: start: 20000801
  2. ZYPREXA [Suspect]
     Active Substance: OLANZAPINE
     Indication: DEPRESSION
     Dosage: 5 MG, UNKNOWN
     Dates: start: 199907, end: 199911

REACTIONS (3)
  - Hyperglycaemia [Unknown]
  - Pancreatitis [Unknown]
  - Affective disorder [Unknown]

NARRATIVE: CASE EVENT DATE: 2002
